FAERS Safety Report 18131743 (Version 1)
Quarter: 2020Q3

REPORT INFORMATION
  Report Type: Other
  Country: IE (occurrence: IE)
  Receive Date: 20200810
  Receipt Date: 20200810
  Transmission Date: 20201103
  Serious: Yes (Other)
  Sender: FDA-Public Use
  Company Number: IE-DEXPHARM-20200692

PATIENT
  Age: 32 Year
  Sex: Female

DRUGS (4)
  1. CLOBETASOL PROPIONATE. [Concomitant]
     Active Substance: CLOBETASOL PROPIONATE
  2. NICOTINAMIDE [Concomitant]
     Active Substance: NIACINAMIDE
     Dosage: DAILY DOSE: 1500 MG MILLGRAM(S) EVERY DAYS
  3. DOXYCYCLINE. [Concomitant]
     Active Substance: DOXYCYCLINE
     Dosage: DAILY DOSE: 100 MG MILLGRAM(S) EVERY DAYS
  4. DICLOFENAC 10MG/G TOPICAL [Suspect]
     Active Substance: DICLOFENAC

REACTIONS (1)
  - Pemphigus [Recovered/Resolved]
